FAERS Safety Report 9596252 (Version 3)
Quarter: 2013Q4

REPORT INFORMATION
  Report Type: Spontaneous
  Country: CA (occurrence: CA)
  Receive Date: 20131004
  Receipt Date: 20131029
  Transmission Date: 20140711
  Serious: Yes (Death)
  Sender: FDA-Public Use
  Company Number: CA-PFIZER INC-2013282186

PATIENT
  Age: 70 Year
  Sex: Male

DRUGS (4)
  1. INLYTA [Suspect]
     Indication: METASTATIC RENAL CELL CARCINOMA
     Dosage: 5 MG, 2X/DAY
     Dates: start: 20130606
  2. TECTA [Concomitant]
     Dosage: UNK
  3. BOOST [Concomitant]
     Dosage: UNK
  4. MAGIC MOUTHWASH [Concomitant]
     Indication: PALLIATIVE CARE
     Dosage: UNK
     Dates: start: 2012

REACTIONS (1)
  - Death [Fatal]
